FAERS Safety Report 4965713-1 (Version None)
Quarter: 2006Q1

REPORT INFORMATION
  Report Type: 
  Country: None (occurrence: None)
  Receive Date: 20060331
  Receipt Date: 20060320
  Transmission Date: 20060701
  Serious: Yes (Other)
  Sender: FDA-Public Use
  Company Number: DE200603005277

PATIENT
  Age: 16 Year
  Sex: Male
  Weight: 60 kg

DRUGS (2)
  1. ZYPREXA [Suspect]
     Indication: TOURETTE'S DISORDER
     Dosage: SEE IMAGE
     Route: 048
  2. STRATTERA [Suspect]
     Indication: ATTENTION DEFICIT/HYPERACTIVITY DISORDER
     Dosage: SEE IMAGE
     Route: 048

REACTIONS (4)
  - AGITATION [None]
  - BODY TEMPERATURE INCREASED [None]
  - CONVULSION [None]
  - DRUG INEFFECTIVE [None]
